FAERS Safety Report 7693099-0 (Version None)
Quarter: 2011Q3

REPORT INFORMATION
  Report Type: 
  Country: None (occurrence: None)
  Receive Date: 20110816
  Receipt Date: 20110801
  Transmission Date: 20111222
  Serious: Yes (Other)
  Sender: FDA-Public Use
  Company Number: 2011MA011461

PATIENT
  Age: 16 Year
  Sex: Female

DRUGS (3)
  1. SEROQUEL [Suspect]
     Dosage: 50 MG;QAM;PO
     Route: 048
  2. SERTRALINE HYDROCHLORIDE [Suspect]
     Indication: PSYCHOTIC BEHAVIOUR
     Dosage: 1000 MG;1X;PO
     Route: 048
     Dates: start: 20110710
  3. SERTRALINE HYDROCHLORIDE [Suspect]
     Indication: OBSESSIVE-COMPULSIVE DISORDER
     Dosage: 1000 MG;1X;PO
     Route: 048
     Dates: start: 20110710

REACTIONS (1)
  - MULTIPLE DRUG OVERDOSE [None]
